FAERS Safety Report 8431581-9 (Version None)
Quarter: 2012Q2

REPORT INFORMATION
  Report Type: 
  Country: None (occurrence: None)
  Receive Date: 20120607
  Receipt Date: 20120607
  Transmission Date: 20120825
  Serious: Yes (Disabling)
  Sender: FDA-Public Use
  Company Number: None

PATIENT
  Age: 60 Year
  Sex: Female
  Weight: 65.7716 kg

DRUGS (2)
  1. PERFOROMIST [Suspect]
     Indication: CHRONIC OBSTRUCTIVE PULMONARY DISEASE
     Dosage: 20MCG/2ML VIAL, TWICE DAILY, IN NEBULIZER
     Dates: start: 20110601, end: 20120101
  2. PERFOROMIST [Suspect]
     Indication: DYSPNOEA
     Dosage: 20MCG/2ML VIAL, TWICE DAILY, IN NEBULIZER
     Dates: start: 20110601, end: 20120101

REACTIONS (7)
  - LACRIMATION INCREASED [None]
  - RHINORRHOEA [None]
  - EPISTAXIS [None]
  - OCULAR DISCOMFORT [None]
  - NASAL SEPTUM PERFORATION [None]
  - WHEEZING [None]
  - PARANASAL SINUS DISCOMFORT [None]
